FAERS Safety Report 7748752-7 (Version None)
Quarter: 2011Q3

REPORT INFORMATION
  Report Type: 
  Country: None (occurrence: None)
  Receive Date: 20110914
  Receipt Date: 20090413
  Transmission Date: 20111222
  Serious: No
  Sender: FDA-Public Use
  Company Number: 2009BI011554

PATIENT
  Sex: Female

DRUGS (2)
  1. TYSABRI [Suspect]
     Indication: MULTIPLE SCLEROSIS
     Route: 042
     Dates: start: 20080903, end: 20100429
  2. TYSABRI [Suspect]
     Route: 042

REACTIONS (10)
  - PYREXIA [None]
  - NEURALGIA [None]
  - BLOOD CHOLESTEROL INCREASED [None]
  - MYALGIA [None]
  - INTERVERTEBRAL DISC PROTRUSION [None]
  - HYPERTENSION [None]
  - NASOPHARYNGITIS [None]
  - MIGRAINE [None]
  - ASTHMA [None]
  - FATIGUE [None]
